FAERS Safety Report 10384768 (Version 3)
Quarter: 2014Q4

REPORT INFORMATION
  Report Type: Spontaneous
  Country: DE (occurrence: DE)
  Receive Date: 20140814
  Receipt Date: 20141201
  Transmission Date: 20150528
  Serious: Yes (Other)
  Sender: FDA-Public Use
  Company Number: DE-NAPPMUNDI-DEU-2014-0015135

PATIENT
  Sex: Male

DRUGS (6)
  1. PENTALONG 50 [Concomitant]
     Dosage: UNK, BID
  2. CYNT                               /00985301/ [Concomitant]
  3. SORTIS [Concomitant]
     Active Substance: ATORVASTATIN
  4. L-THYROXIN [Concomitant]
     Active Substance: LEVOTHYROXINE SODIUM
  5. TARGIN 5MG/2.5MG RETARDTABLETTEN [Suspect]
     Active Substance: NALOXONE HYDROCHLORIDE\OXYCODONE HYDROCHLORIDE
     Indication: RESTLESS LEGS SYNDROME
     Dosage: 5/2.5 MG, PM
     Route: 048
     Dates: start: 20140709, end: 20140804
  6. ASPIRIN. [Concomitant]
     Active Substance: ASPIRIN

REACTIONS (1)
  - Muscular weakness [Recovered/Resolved with Sequelae]
